FAERS Safety Report 8762082 (Version 8)
Quarter: 2013Q2

REPORT INFORMATION
  Report Type: Spontaneous
  Country: US (occurrence: US)
  Receive Date: 20120830
  Receipt Date: 20130419
  Transmission Date: 20140414
  Serious: Yes (Hospitalization, Disabling, Other)
  Sender: FDA-Public Use
  Company Number: US-009507513-1205USA04988

PATIENT
  Sex: Female
  Weight: 66.67 kg

DRUGS (8)
  1. FOSAMAX [Suspect]
     Indication: OSTEOPOROSIS
     Dosage: 70 MG, QW
     Route: 048
     Dates: end: 200603
  2. FOSAMAX [Suspect]
     Indication: SENILE OSTEOPOROSIS
  3. FOSAMAX [Suspect]
     Dosage: 70 MG, QW
     Route: 048
     Dates: start: 20080814, end: 200810
  4. FOSAMAX PLUS D [Suspect]
     Dosage: 70/2800 MG/IU, UNK
     Route: 048
     Dates: start: 20060308, end: 200803
  5. ALENDRONATE SODIUM [Suspect]
     Dosage: 70 MG, UNK
     Route: 048
     Dates: start: 20080321, end: 200808
  6. ALENDRONATE SODIUM [Suspect]
     Dosage: 70 MG, UNK
     Route: 048
     Dates: start: 20081006, end: 200905
  7. ALENDRONATE SODIUM [Suspect]
     Dosage: 70 MG, UNK
     Route: 048
     Dates: start: 20090507, end: 200906
  8. ALENDRONATE SODIUM [Suspect]
     Dosage: 70 MG, UNK
     Route: 048
     Dates: start: 20090610, end: 201006

REACTIONS (50)
  - Intramedullary rod insertion [Not Recovered/Not Resolved]
  - Osteoporosis [Not Recovered/Not Resolved]
  - Stress fracture [Not Recovered/Not Resolved]
  - Deafness [Unknown]
  - Chest pain [Not Recovered/Not Resolved]
  - Rhabdomyolysis [Unknown]
  - Renal failure acute [Unknown]
  - Hypoxia [Unknown]
  - Atelectasis [Unknown]
  - Haemorrhagic anaemia [Unknown]
  - Urinary tract infection [Unknown]
  - Back pain [Not Recovered/Not Resolved]
  - Femur fracture [Not Recovered/Not Resolved]
  - Femur fracture [Not Recovered/Not Resolved]
  - Dyspepsia [Not Recovered/Not Resolved]
  - Osteonecrosis of jaw [Not Recovered/Not Resolved]
  - Musculoskeletal pain [Not Recovered/Not Resolved]
  - Sinus disorder [Unknown]
  - Herpes zoster [Unknown]
  - Post herpetic neuralgia [Not Recovered/Not Resolved]
  - Arthritis [Unknown]
  - Tooth disorder [Unknown]
  - Osteitis deformans [Unknown]
  - Gingival bleeding [Unknown]
  - Sensitivity of teeth [Unknown]
  - Peripheral coldness [Unknown]
  - Hyperaemia [Unknown]
  - Raynaud^s phenomenon [Unknown]
  - Cardioversion [Recovering/Resolving]
  - Atrial fibrillation [Recovering/Resolving]
  - Tinnitus [Unknown]
  - Spinal disorder [Unknown]
  - Anxiety [Unknown]
  - Blepharochalasis [Unknown]
  - Restlessness [Unknown]
  - Sleep disorder [Unknown]
  - Peripheral arterial occlusive disease [Unknown]
  - Intermittent claudication [Unknown]
  - Cough [Unknown]
  - Hyperlipidaemia [Not Recovered/Not Resolved]
  - Hypertension [Unknown]
  - Fatigue [Unknown]
  - Malaise [Unknown]
  - Paraesthesia [Unknown]
  - Erythromelalgia [Unknown]
  - Fall [Unknown]
  - Ear discomfort [Unknown]
  - Osteomalacia [Unknown]
  - Constipation [Unknown]
  - Drug ineffective [Unknown]
